FAERS Safety Report 9815475 (Version 1)
Quarter: 2014Q1

REPORT INFORMATION
  Report Type: Spontaneous
  Country: US (occurrence: US)
  Receive Date: 20140114
  Receipt Date: 20140114
  Transmission Date: 20141002
  Serious: No
  Sender: FDA-Public Use
  Company Number: US-PFIZER INC-2014008826

PATIENT
  Age: 42 Year
  Sex: Female

DRUGS (7)
  1. NEURONTIN [Suspect]
     Dosage: UNK
  2. TORADOL [Suspect]
     Dosage: UNK
  3. COMPAZINE [Suspect]
     Dosage: UNK
  4. NIACIN [Suspect]
     Dosage: UNK
  5. IMITREX [Suspect]
     Dosage: UNK
  6. ULTRAM [Suspect]
     Dosage: UNK
  7. OXYCONTIN [Suspect]
     Dosage: UNK

REACTIONS (1)
  - Drug hypersensitivity [Unknown]
